FAERS Safety Report 4620634-9 (Version None)
Quarter: 2005Q1

REPORT INFORMATION
  Report Type: 
  Country: None (occurrence: None)
  Receive Date: 20050324
  Receipt Date: 20050317
  Transmission Date: 20050727
  Serious: Yes (Hospitalization, Other)
  Sender: FDA-Public Use
  Company Number: HQWYE042313JUL04

PATIENT
  Age: 47 Year
  Sex: Female

DRUGS (5)
  1. PANTOPRAZOLE SODIUM [Suspect]
     Indication: GASTROENTERITIS HELICOBACTER
     Dosage: 40 MG 2X PER 1 DAY
     Route: 048
     Dates: start: 20040524, end: 20040530
  2. AMOXICILLIN [Suspect]
     Indication: GASTROENTERITIS HELICOBACTER
     Dosage: 1000 MG 2X PER 1 DAY
     Route: 048
     Dates: start: 20040524, end: 20040530
  3. CLARITHROMYCIN (CLARITHYROMYCIN, ) [Suspect]
     Indication: GASTROENTERITIS HELICOBACTER
     Dosage: 500 MG 2X PER 1 DAY
     Route: 048
     Dates: start: 20040524, end: 20040530
  4. LEVOTHYROXINE SODIUM [Concomitant]
  5. TIBOLONE (TIBOLONE) [Concomitant]

REACTIONS (2)
  - GRAND MAL CONVULSION [None]
  - NAUSEA [None]
